FAERS Safety Report 23741248 (Version 1)
Quarter: 2024Q2

REPORT INFORMATION
  Report Type: Spontaneous
  Country: US (occurrence: US)
  Receive Date: 20240415
  Receipt Date: 20240415
  Transmission Date: 20240716
  Serious: No
  Sender: FDA-Public Use
  Company Number: US-ABBVIE-5712729

PATIENT
  Sex: Male

DRUGS (1)
  1. RINVOQ [Suspect]
     Active Substance: UPADACITINIB
     Indication: Rheumatoid arthritis
     Dosage: FORM STRENGTH: 30 MG
     Route: 048

REACTIONS (4)
  - Joint swelling [Unknown]
  - Drug ineffective [Not Recovered/Not Resolved]
  - Dermatitis [Unknown]
  - Pain [Unknown]
